FAERS Safety Report 6720511-3 (Version None)
Quarter: 2010Q2

REPORT INFORMATION
  Report Type: 
  Country: None (occurrence: None)
  Receive Date: 20100511
  Receipt Date: 20100504
  Transmission Date: 20101027
  Serious: Yes (Other)
  Sender: FDA-Public Use
  Company Number: GB-AMGEN-QUU406513

PATIENT
  Sex: Male

DRUGS (4)
  1. ARANESP [Suspect]
     Indication: RENAL FAILURE CHRONIC
     Route: 058
     Dates: start: 20090224, end: 20100415
  2. ASPIRIN [Concomitant]
  3. ALLOPURINOL [Concomitant]
     Dates: start: 20080101
  4. CALCICHEW [Concomitant]
     Dates: start: 20100101

REACTIONS (6)
  - HYPERSENSITIVITY [None]
  - OEDEMA PERIPHERAL [None]
  - PAIN OF SKIN [None]
  - RASH ERYTHEMATOUS [None]
  - RASH GENERALISED [None]
  - SKIN WARM [None]
